FAERS Safety Report 4806305-4 (Version None)
Quarter: 2005Q4

REPORT INFORMATION
  Report Type: 
  Country: None (occurrence: None)
  Receive Date: 20051021
  Receipt Date: 20050915
  Transmission Date: 20060501
  Serious: Yes (Life-Threatening, Hospitalization, Other)
  Sender: FDA-Public Use
  Company Number: US-MERCK-0509USA02231

PATIENT
  Age: 85 Year
  Sex: Female
  Weight: 54 kg

DRUGS (2)
  1. VIOXX [Suspect]
     Indication: OSTEOARTHRITIS
     Route: 048
     Dates: start: 20010801, end: 20040401
  2. [THERAPY UNSPECIFIED] [Concomitant]
     Indication: BLOOD PRESSURE
     Route: 065

REACTIONS (23)
  - ANGINA UNSTABLE [None]
  - AORTIC ANEURYSM [None]
  - AORTIC DISSECTION [None]
  - BLOOD POTASSIUM INCREASED [None]
  - BLOOD SODIUM DECREASED [None]
  - BREAST CANCER METASTATIC [None]
  - CARDIAC FAILURE CONGESTIVE [None]
  - CATARACT [None]
  - CEREBROVASCULAR ACCIDENT [None]
  - CHEST PAIN [None]
  - CONFUSIONAL STATE [None]
  - FALL [None]
  - GASTROENTERITIS [None]
  - HYPERTENSION [None]
  - MALAISE [None]
  - METASTASES TO BONE [None]
  - NAUSEA [None]
  - PAIN IN EXTREMITY [None]
  - RENAL FAILURE [None]
  - RENAL FAILURE CHRONIC [None]
  - SHOULDER PAIN [None]
  - THERMAL BURN [None]
  - VOMITING [None]
